FAERS Safety Report 6425783-0 (Version None)
Quarter: 2009Q4

REPORT INFORMATION
  Report Type: 
  Country: None (occurrence: None)
  Receive Date: 20091103
  Receipt Date: 20091023
  Transmission Date: 20100525
  Serious: Yes (Hospitalization, Disabling, Other)
  Sender: FDA-Public Use
  Company Number: IN-MERCK-0910USA02998

PATIENT
  Age: 56 Year
  Sex: Female
  Weight: 70 kg

DRUGS (6)
  1. JANUVIA [Suspect]
     Indication: TYPE 2 DIABETES MELLITUS
     Route: 048
     Dates: start: 20080705, end: 20091001
  2. GLICLAZIDE [Concomitant]
     Indication: TYPE 2 DIABETES MELLITUS
     Route: 048
     Dates: start: 20090726, end: 20091010
  3. TELMISARTAN [Concomitant]
     Indication: HYPERTENSION
     Route: 048
     Dates: start: 20090726, end: 20090101
  4. NITROGARD [Concomitant]
     Indication: HYPERTENSION
     Route: 048
     Dates: start: 20090726
  5. MIXTARD HUMAN 70/30 [Concomitant]
     Route: 042
     Dates: start: 20090726, end: 20090101
  6. DILTIAZEM HCL [Concomitant]
     Indication: HYPERTENSION
     Route: 065
     Dates: start: 20090726, end: 20090101

REACTIONS (4)
  - ABDOMINAL PAIN [None]
  - DYSPNOEA [None]
  - NAUSEA [None]
  - VOMITING [None]
